FAERS Safety Report 6038938-4 (Version None)
Quarter: 2009Q1

REPORT INFORMATION
  Report Type: 
  Country: None (occurrence: None)
  Receive Date: 20090115
  Receipt Date: 20090106
  Transmission Date: 20090719
  Serious: Yes (Hospitalization)
  Sender: FDA-Public Use
  Company Number: FR-WYE-H06052808

PATIENT
  Age: 74 Year
  Sex: Female

DRUGS (2)
  1. INIPOMP [Suspect]
     Dosage: UNKNOWN
     Route: 048
  2. TAREG [Concomitant]
     Dosage: UNKNOWN
     Route: 048

REACTIONS (1)
  - HYPONATRAEMIA [None]
